FAERS Safety Report 7046823-4 (Version None)
Quarter: 2010Q3

REPORT INFORMATION
  Report Type: 
  Country: None (occurrence: None)
  Receive Date: 20100908
  Receipt Date: 20100824
  Transmission Date: 20110219
  Serious: Yes (Hospitalization)
  Sender: FDA-Public Use
  Company Number: GAM-218-10-US

PATIENT
  Age: 15 Year
  Sex: Male

DRUGS (1)
  1. OCTAGAM [Suspect]
     Indication: MITOCHONDRIAL MYOPATHY
     Dosage: 10GM QDX2DAYS Q2WKS IV
     Route: 042
     Dates: start: 20100807, end: 20100808

REACTIONS (3)
  - ANTIBIOTIC RESISTANT STAPHYLOCOCCUS TEST POSITIVE [None]
  - DEVICE RELATED INFECTION [None]
  - JUGULAR VEIN THROMBOSIS [None]
